FAERS Safety Report 5503993-4 (Version None)
Quarter: 2007Q4

REPORT INFORMATION
  Report Type: 
  Country: None (occurrence: None)
  Receive Date: 20071101
  Receipt Date: 20071022
  Transmission Date: 20080405
  Serious: Yes (Other)
  Sender: FDA-Public Use
  Company Number: JP-ROCHE-528080

PATIENT
  Age: 48 Year
  Sex: Female

DRUGS (5)
  1. INTERFERON ALFA [Suspect]
     Route: 030
  2. INTERFERON ALFA [Suspect]
     Route: 030
  3. LOXOPROFEN [Concomitant]
     Indication: ARTHRALGIA
  4. RANITIDINE [Concomitant]
     Indication: ANOREXIA
  5. ECABET [Concomitant]

REACTIONS (4)
  - ABDOMINAL PAIN UPPER [None]
  - AKATHISIA [None]
  - ANOREXIA [None]
  - ARTHRALGIA [None]
